FAERS Safety Report 9262774 (Version 2)
Quarter: 2013Q2

REPORT INFORMATION
  Report Type: Spontaneous
  Country: FR (occurrence: FR)
  Receive Date: 20130430
  Receipt Date: 20130624
  Transmission Date: 20140414
  Serious: Yes (Hospitalization)
  Sender: FDA-Public Use
  Company Number: FR-JNJFOC-20130412332

PATIENT
  Age: 62 Year
  Sex: Male
  Weight: 65 kg

DRUGS (8)
  1. STELARA [Suspect]
     Indication: PSORIASIS
     Route: 058
     Dates: start: 20130419, end: 20130419
  2. STELARA [Suspect]
     Indication: PSORIASIS
     Route: 058
     Dates: start: 20130118, end: 20130118
  3. STELARA [Suspect]
     Indication: PSORIASIS
     Route: 058
     Dates: start: 20121016, end: 20121016
  4. STELARA [Suspect]
     Indication: PSORIASIS
     Route: 058
     Dates: start: 20120914, end: 20120914
  5. INSULIN [Concomitant]
     Indication: DIABETES MELLITUS
     Route: 065
  6. METFORMINE [Concomitant]
     Indication: TYPE 2 DIABETES MELLITUS
     Dosage: FOR SEVERAL YEARS
     Route: 048
  7. BARACLUDE [Concomitant]
     Indication: HEPATITIS B
     Dosage: FOR SEVERAL YEARS
     Route: 048
     Dates: start: 20120914
  8. ELISOR [Concomitant]
     Indication: DYSLIPIDAEMIA
     Dosage: FOR SEVERAL YEARS
     Route: 048

REACTIONS (4)
  - Blister [Not Recovered/Not Resolved]
  - Therapeutic response decreased [Not Recovered/Not Resolved]
  - Guttate psoriasis [Recovered/Resolved]
  - Pustular psoriasis [Recovered/Resolved]
